FAERS Safety Report 18543868 (Version 13)
Quarter: 2025Q1

REPORT INFORMATION
  Report Type: Report from Study
  Country: US (occurrence: US)
  Receive Date: 20201124
  Receipt Date: 20250320
  Transmission Date: 20250408
  Serious: Yes (Hospitalization, Other)
  Sender: TAKEDA
  Company Number: US-TAKEDA-US201923493

PATIENT
  Age: 66 Year
  Sex: Male
  Weight: 61 kg

DRUGS (19)
  1. HUMAN IMMUNOGLOBULIN G [Suspect]
     Active Substance: HUMAN IMMUNOGLOBULIN G
     Indication: Chronic inflammatory demyelinating polyradiculoneuropathy
     Dosage: 140 GRAM, Q3WEEKS
     Dates: start: 20091022
  2. HUMAN IMMUNOGLOBULIN G [Suspect]
     Active Substance: HUMAN IMMUNOGLOBULIN G
  3. HUMAN IMMUNOGLOBULIN G [Suspect]
     Active Substance: HUMAN IMMUNOGLOBULIN G
     Dosage: 150 GRAM, Q3WEEKS
  4. HUMAN IMMUNOGLOBULIN G [Suspect]
     Active Substance: HUMAN IMMUNOGLOBULIN G
     Dosage: 120 GRAM, Q3WEEKS
  5. HUMAN IMMUNOGLOBULIN G [Suspect]
     Active Substance: HUMAN IMMUNOGLOBULIN G
  6. HUMAN IMMUNOGLOBULIN G [Suspect]
     Active Substance: HUMAN IMMUNOGLOBULIN G
     Dosage: 125 GRAM, Q3WEEKS
  7. DIPHENHYDRAMINE [Concomitant]
     Active Substance: DIPHENHYDRAMINE
  8. COMBIGAN [Concomitant]
     Active Substance: BRIMONIDINE TARTRATE\TIMOLOL MALEATE
  9. RITUXAN [Concomitant]
     Active Substance: RITUXIMAB
  10. EPINEPHRINE [Concomitant]
     Active Substance: EPINEPHRINE
  11. SODIUM CHLORIDE [Concomitant]
     Active Substance: SODIUM CHLORIDE
  12. ACETAMINOPHEN [Concomitant]
     Active Substance: ACETAMINOPHEN
  13. TRAVOPROST [Concomitant]
     Active Substance: TRAVOPROST
  14. HEPARIN [Concomitant]
     Active Substance: HEPARIN SODIUM
  15. DEXTROSE [Concomitant]
     Active Substance: DEXTROSE MONOHYDRATE
  16. VITAMIN D [Concomitant]
     Active Substance: VITAMIN D NOS
  17. PRIVIGEN [Concomitant]
     Active Substance: HUMAN IMMUNOGLOBULIN G
  18. DIPHENHYDRAMINE HYDROCHLORIDE [Concomitant]
     Active Substance: DIPHENHYDRAMINE HYDROCHLORIDE
  19. ADVIL [Concomitant]
     Active Substance: IBUPROFEN

REACTIONS (13)
  - Pneumonia [Unknown]
  - Gait disturbance [Unknown]
  - Mobility decreased [Unknown]
  - Fall [Unknown]
  - Skin abrasion [Unknown]
  - Insurance issue [Unknown]
  - Joint injury [Unknown]
  - Hypoaesthesia [Unknown]
  - Infusion site extravasation [Unknown]
  - Asthenia [Unknown]
  - Infusion site pruritus [Unknown]
  - Muscle spasms [Unknown]
  - Back pain [Unknown]

NARRATIVE: CASE EVENT DATE: 20220928
